FAERS Safety Report 9335246 (Version 2)
Quarter: 2013Q3

REPORT INFORMATION
  Report Type: Spontaneous
  Country: CN (occurrence: CN)
  Receive Date: 20130606
  Receipt Date: 20130912
  Transmission Date: 20140515
  Serious: Yes (Hospitalization)
  Sender: FDA-Public Use
  Company Number: CN-PFIZER INC-2013168814

PATIENT
  Age: 87 Year
  Sex: Male
  Weight: 65 kg

DRUGS (4)
  1. DIFLUCAN [Suspect]
     Indication: LUNG INFECTION
     Dosage: 0.4 G, 1X/DAY
     Route: 041
     Dates: start: 20121003, end: 20121006
  2. DIFLUCAN [Suspect]
     Dosage: 0.2 G, 1X/DAY
     Route: 041
     Dates: start: 20121007, end: 20121009
  3. SULPERAZON [Concomitant]
     Indication: LUNG INFECTION
     Dosage: 3 G, 1X/DAY
     Route: 041
     Dates: start: 20120930, end: 20121005
  4. MOXIFLOXACIN [Concomitant]
     Indication: LUNG INFECTION
     Dosage: UNK
     Dates: end: 20121003

REACTIONS (2)
  - Blood creatinine increased [Recovering/Resolving]
  - Platelet count decreased [Recovering/Resolving]
